FAERS Safety Report 19923056 (Version 1)
Quarter: 2021Q4

REPORT INFORMATION
  Report Type: Spontaneous
  Country: CA (occurrence: CA)
  Receive Date: 20211006
  Receipt Date: 20211006
  Transmission Date: 20220303
  Serious: Yes (Life-Threatening, Hospitalization)
  Sender: FDA-Public Use
  Company Number: CA-TEVA-2021-CA-1961266

PATIENT
  Sex: Male

DRUGS (12)
  1. CLOPIDOGREL [Suspect]
     Active Substance: CLOPIDOGREL BISULFATE
     Indication: Acute myocardial infarction
     Route: 065
  2. ASPIRIN [Suspect]
     Active Substance: ASPIRIN
     Indication: Acute myocardial infarction
     Route: 065
  3. FERROUS SULFATE [Concomitant]
     Active Substance: FERROUS SULFATE
  4. CENTRUM FORTE [Concomitant]
  5. ATORVASTATIN [Concomitant]
     Active Substance: ATORVASTATIN
  6. DOMPERIDONE [Concomitant]
     Active Substance: DOMPERIDONE
  7. METOPROLOL [Concomitant]
     Active Substance: METOPROLOL
     Route: 065
  8. MIRTAZAPINE [Concomitant]
     Active Substance: MIRTAZAPINE
  9. NITROGLYCERIN [Concomitant]
     Active Substance: NITROGLYCERIN
  10. PANTOPRAZOLE [Concomitant]
     Active Substance: PANTOPRAZOLE
  11. PERINDOPRIL [Concomitant]
     Active Substance: PERINDOPRIL
  12. TAMSULOSIN [Concomitant]
     Active Substance: TAMSULOSIN

REACTIONS (7)
  - Cerebral haemorrhage [Unknown]
  - Confusional state [Unknown]
  - Dizziness [Unknown]
  - General physical health deterioration [Unknown]
  - Hydrocephalus [Unknown]
  - Nausea [Unknown]
  - Vomiting [Unknown]
